FAERS Safety Report 6452989-7 (Version None)
Quarter: 2009Q4

REPORT INFORMATION
  Report Type: 
  Country: None (occurrence: None)
  Receive Date: 20091123
  Receipt Date: 20091123
  Transmission Date: 20100525
  Serious: Yes (Life-Threatening)
  Sender: FDA-Public Use
  Company Number: None

PATIENT
  Sex: Female
  Weight: 70.3075 kg

DRUGS (2)
  1. ASTEPRO [Suspect]
     Indication: DYSPNOEA
     Dosage: 2 DROPS IN EACH NOS. 2 DROPS ONLY
     Route: 045
     Dates: start: 20091023
  2. ASTEPRO [Suspect]
     Indication: HYPERSENSITIVITY
     Dosage: 2 DROPS IN EACH NOS. 2 DROPS ONLY
     Route: 045
     Dates: start: 20091023

REACTIONS (1)
  - CHEST PAIN [None]
